FAERS Safety Report 23668317 (Version 1)
Quarter: 2024Q1

REPORT INFORMATION
  Report Type: Spontaneous
  Country: US (occurrence: None)
  Receive Date: 20240322
  Receipt Date: 20240322
  Transmission Date: 20240409
  Serious: Yes (Other)
  Sender: FDA-Public Use
  Company Number: None

PATIENT
  Age: 36 Year
  Sex: Female
  Weight: 63 kg

DRUGS (2)
  1. SUBLOCADE [Suspect]
     Active Substance: BUPRENORPHINE
     Indication: Pain
     Dates: start: 20240307
  2. SUBLOCADE [Suspect]
     Active Substance: BUPRENORPHINE
     Indication: Drug dependence

REACTIONS (8)
  - Swelling [None]
  - Headache [None]
  - Nausea [None]
  - Vomiting [None]
  - Tremor [None]
  - Fatigue [None]
  - Pruritus [None]
  - Injection site swelling [None]

NARRATIVE: CASE EVENT DATE: 20230307
